FAERS Safety Report 10037660 (Version 2)
Quarter: 2014Q2

REPORT INFORMATION
  Report Type: Spontaneous
  Country: US (occurrence: US)
  Receive Date: 20140326
  Receipt Date: 20140513
  Transmission Date: 20141212
  Serious: No
  Sender: FDA-Public Use
  Company Number: US-PFIZER INC-2014082907

PATIENT
  Age: 48 Year
  Sex: Female
  Weight: 73.92 kg

DRUGS (2)
  1. LYRICA [Suspect]
     Indication: FIBROMYALGIA
     Dosage: 100 MG, 3X/DAY
     Route: 048
     Dates: start: 2009
  2. LYRICA [Suspect]
     Indication: RHEUMATOID ARTHRITIS

REACTIONS (1)
  - Blood test abnormal [Unknown]
